FAERS Safety Report 5227701-X (Version None)
Quarter: 2007Q1

REPORT INFORMATION
  Report Type: 
  Country: None (occurrence: None)
  Receive Date: 20070202
  Receipt Date: 20070124
  Transmission Date: 20070707
  Serious: Yes (Hospitalization)
  Sender: FDA-Public Use
  Company Number: DE-ABBOTT-07P-062-0357140-00

PATIENT
  Sex: Female
  Weight: 56 kg

DRUGS (3)
  1. KLACID PRO [Suspect]
     Indication: BRONCHITIS
     Route: 048
     Dates: start: 20061221, end: 20061222
  2. KLACID PRO [Suspect]
     Route: 048
     Dates: start: 20061222, end: 20061225
  3. DIPYRONE TAB [Concomitant]
     Indication: DRUG USE FOR UNKNOWN INDICATION

REACTIONS (4)
  - CHOLESTASIS [None]
  - HEPATOCELLULAR DAMAGE [None]
  - HEPATOMEGALY [None]
  - LIVER DISORDER [None]
